FAERS Safety Report 7390113-7 (Version None)
Quarter: 2011Q1

REPORT INFORMATION
  Report Type: 
  Country: None (occurrence: None)
  Receive Date: 20110324
  Receipt Date: 20110310
  Transmission Date: 20110831
  Serious: Yes (Hospitalization)
  Sender: FDA-Public Use
  Company Number: MPS1-1000471

PATIENT
  Age: 18 Year
  Sex: Female
  Weight: 45.1 kg

DRUGS (1)
  1. ALDURAZYME [Suspect]
     Indication: MUCOPOLYSACCHARIDOSIS
     Dosage: 0.58 MG/'KG, QW, INTRAVENOUS
     Route: 042
     Dates: start: 20041201

REACTIONS (1)
  - SHUNT OCCLUSION [None]
